FAERS Safety Report 6145766-8 (Version None)
Quarter: 2009Q2

REPORT INFORMATION
  Report Type: 
  Country: None (occurrence: None)
  Receive Date: 20090407
  Receipt Date: 20090326
  Transmission Date: 20091009
  Serious: Yes (Other)
  Sender: FDA-Public Use
  Company Number: AU-PFIZER INC-2009177392

PATIENT

DRUGS (6)
  1. DEPO-MEDROL [Suspect]
     Indication: RHEUMATOID ARTHRITIS
     Dosage: UNK
     Dates: start: 20090302, end: 20090302
  2. XYLOCAINE [Suspect]
     Indication: RHEUMATOID ARTHRITIS
     Dosage: UNK
     Dates: start: 20090302, end: 20090302
  3. COVERSYL PLUS [Concomitant]
     Indication: HYPERTENSION
     Dosage: 1.25MG/5MG
     Route: 048
  4. NEXIUM [Concomitant]
     Indication: REFLUX OESOPHAGITIS
     Dosage: 20 MG, 1X/DAY
     Route: 048
  5. SIMVASTATIN [Concomitant]
     Indication: HYPERCHOLESTEROLAEMIA
     Dosage: 40 MG, 1X/DAY
     Route: 048
  6. MOBIC [Concomitant]
     Dosage: 15 MG, 1X/DAY
     Route: 048

REACTIONS (6)
  - DIZZINESS [None]
  - DYSARTHRIA [None]
  - HYPERTENSION [None]
  - INJECTION SITE PAIN [None]
  - PAIN IN EXTREMITY [None]
  - VISION BLURRED [None]
